FAERS Safety Report 5051513-3 (Version None)
Quarter: 2006Q3

REPORT INFORMATION
  Report Type: 
  Country: None (occurrence: None)
  Receive Date: 20060710
  Receipt Date: 20060627
  Transmission Date: 20061208
  Serious: Yes (Other)
  Sender: FDA-Public Use
  Company Number: 2006BI008356

PATIENT
  Age: 69 Year
  Sex: Female

DRUGS (16)
  1. AVONEX [Suspect]
     Indication: MULTIPLE SCLEROSIS
     Dosage: 30 UG;QW;IM
     Route: 030
     Dates: start: 20021101
  2. LASIX [Concomitant]
  3. MERREM [Concomitant]
  4. VESICARE [Concomitant]
  5. LANTUS [Concomitant]
  6. AZACTAM [Concomitant]
  7. IMIPROMINE [Concomitant]
  8. TIMOLOL MALEATE [Concomitant]
  9. XANAX [Concomitant]
  10. BENZONATATE [Concomitant]
  11. POTASSIUM CHLORIDE [Concomitant]
  12. SYNTHROID [Concomitant]
  13. FELODIPINE [Concomitant]
  14. ONEPRAZOLE [Concomitant]
  15. PAXIL [Concomitant]
  16. COZAAR [Concomitant]

REACTIONS (1)
  - THROMBOCYTOPENIA [None]
